FAERS Safety Report 23671244 (Version 2)
Quarter: 2024Q2

REPORT INFORMATION
  Report Type: Report from Study
  Country: AR (occurrence: AR)
  Receive Date: 20240326
  Receipt Date: 20240416
  Transmission Date: 20240715
  Serious: No
  Sender: FDA-Public Use
  Company Number: AR-JNJFOC-20240316166

PATIENT
  Age: 48 Year
  Sex: Male
  Weight: 92 kg

DRUGS (4)
  1. SIMPONI [Suspect]
     Active Substance: GOLIMUMAB
     Indication: Rheumatoid arthritis
     Dosage: STRENGTH:50.00 MG / 0.50 ML
     Route: 058
     Dates: start: 20210328
  2. SIMPONI [Suspect]
     Active Substance: GOLIMUMAB
  3. SIMPONI [Suspect]
     Active Substance: GOLIMUMAB
     Indication: Rheumatoid arthritis
     Dosage: STRENGTH:50.00 MG / 0.50 ML
     Route: 058
  4. SIMPONI [Suspect]
     Active Substance: GOLIMUMAB

REACTIONS (3)
  - Device failure [Unknown]
  - Device deployment issue [Unknown]
  - Product dose omission issue [Unknown]

NARRATIVE: CASE EVENT DATE: 20240301
